FAERS Safety Report 25640727 (Version 1)
Quarter: 2025Q3

REPORT INFORMATION
  Report Type: Spontaneous
  Country: US (occurrence: None)
  Receive Date: 20250801
  Receipt Date: 20250801
  Transmission Date: 20251020
  Serious: Yes (Other)
  Sender: FDA-CTU
  Company Number: None

PATIENT
  Age: 45 Year
  Sex: Female
  Weight: 60.75 kg

DRUGS (6)
  1. FINASTERIDE [Suspect]
     Active Substance: FINASTERIDE
     Indication: Alopecia
     Dosage: 2 TABLET(S) AT BEDTO,E PRA;
     Route: 048
  2. ADHD-Concerta, half to one whole pill per day [Concomitant]
  3. Spironolactone - 200 mg [Concomitant]
  4. Finastride - 2 mg [Concomitant]
  5. Divi hair vitamins 2 capsules [Concomitant]
  6. MINOXIDIL [Concomitant]
     Active Substance: MINOXIDIL

REACTIONS (5)
  - Emotional disorder [None]
  - Negative thoughts [None]
  - Apathy [None]
  - Depression [None]
  - Malaise [None]

NARRATIVE: CASE EVENT DATE: 20250731
